FAERS Safety Report 13796027 (Version 1)
Quarter: 2017Q3

REPORT INFORMATION
  Report Type: Spontaneous
  Country: IT (occurrence: IT)
  Receive Date: 20170726
  Receipt Date: 20170726
  Transmission Date: 20171127
  Serious: Yes (Other)
  Sender: FDA-Public Use
  Company Number: IT-TEVA-789149ACC

PATIENT
  Age: 74 Year
  Sex: Male

DRUGS (3)
  1. CISPLATIN. [Suspect]
     Active Substance: CISPLATIN
     Indication: SARCOMA
     Route: 042
     Dates: start: 20170620, end: 20170620
  2. ETOPOSIDE. [Suspect]
     Active Substance: ETOPOSIDE
     Indication: SARCOMA
     Route: 042
     Dates: start: 20170620, end: 20170623
  3. ZARZIO - 30MU (60MU/ML) SOLUZIONE INIETTABILE O PER INFUSIONE [Concomitant]
     Indication: COLONY STIMULATING FACTOR PROPHYLAXIS
     Dosage: 30 IU (IN MILLIONS)
     Route: 058
     Dates: start: 20170623, end: 20170627

REACTIONS (3)
  - Leukopenia [Recovered/Resolved]
  - Neutropenia [Recovered/Resolved]
  - Bone marrow toxicity [Recovered/Resolved]

NARRATIVE: CASE EVENT DATE: 20170630
